FAERS Safety Report 4870449-1 (Version None)
Quarter: 2006Q1

REPORT INFORMATION
  Report Type: 
  Country: None (occurrence: None)
  Receive Date: 20060103
  Receipt Date: 20050713
  Transmission Date: 20060701
  Serious: No
  Sender: FDA-Public Use
  Company Number: US-BRISTOL-MYERS SQUIBB COMPANY-13035654

PATIENT
  Age: 55 Year
  Sex: Female
  Weight: 138 kg

DRUGS (29)
  1. TRAZODONE HCL [Suspect]
     Indication: DEPRESSION
     Route: 048
     Dates: start: 20050709
  2. ZANAFLEX [Concomitant]
  3. MOBIC [Concomitant]
  4. K-DUR 10 [Concomitant]
  5. ANTIVERT [Concomitant]
  6. AVANDIA [Concomitant]
  7. SYNTHROID [Concomitant]
  8. NORVASC [Concomitant]
  9. PREVACID [Concomitant]
  10. XANAX [Concomitant]
  11. ZOLOFT [Concomitant]
  12. IMITREX [Concomitant]
  13. SOMA [Concomitant]
  14. TALWIN [Concomitant]
  15. REGLAN [Concomitant]
  16. CARAFATE [Concomitant]
  17. COLACE [Concomitant]
  18. PROVIGIL [Concomitant]
  19. LASIX [Concomitant]
  20. BETASERON [Concomitant]
  21. VITAMIN B-12 [Concomitant]
  22. ZETIA [Concomitant]
  23. FOLIC ACID [Concomitant]
  24. REGULAR INSULIN [Concomitant]
  25. LANTUS [Concomitant]
  26. MULTIVITAMIN [Concomitant]
  27. ZELNORM [Concomitant]
  28. SUDAL [Concomitant]
  29. SUDAL-DM [Concomitant]

REACTIONS (2)
  - DYSPEPSIA [None]
  - SLEEP DISORDER [None]
